FAERS Safety Report 11694270 (Version 1)
Quarter: 2015Q4

REPORT INFORMATION
  Report Type: Spontaneous
  Country: US (occurrence: US)
  Receive Date: 20151103
  Receipt Date: 20151103
  Transmission Date: 20160304
  Serious: Yes (Life-Threatening, Other)
  Sender: FDA-Public Use
  Company Number: US-BAYER-2015-451917

PATIENT

DRUGS (1)
  1. ALEVE [Suspect]
     Active Substance: NAPROXEN SODIUM

REACTIONS (8)
  - Drug hypersensitivity [None]
  - Cardiac disorder [None]
  - Urticaria [None]
  - Feeling abnormal [None]
  - Chest pain [None]
  - Anxiety [None]
  - Loss of consciousness [None]
  - Dyspnoea [None]
